FAERS Safety Report 5302940-8 (Version None)
Quarter: 2007Q2

REPORT INFORMATION
  Report Type: 
  Country: None (occurrence: None)
  Receive Date: 20070417
  Receipt Date: 20070417
  Transmission Date: 20071010
  Serious: Yes (Hospitalization)
  Sender: FDA-Public Use
  Company Number: None

PATIENT
  Age: 22 Year
  Sex: Female
  Weight: 105 kg

DRUGS (1)
  1. JUNEL 1/20 [Suspect]
     Dosage: 1 TAB DAILY PO
     Route: 048

REACTIONS (4)
  - CEREBRAL THROMBOSIS [None]
  - GRAND MAL CONVULSION [None]
  - HEADACHE [None]
  - VOMITING [None]
